FAERS Safety Report 10576468 (Version 1)
Quarter: 2014Q4

REPORT INFORMATION
  Report Type: Spontaneous
  Country: US (occurrence: None)
  Receive Date: 20141110
  Receipt Date: 20141110
  Transmission Date: 20150529
  Serious: Yes (Life-Threatening, Disabling, Other)
  Sender: FDA-Public Use
  Company Number: None

PATIENT
  Age: 31 Year
  Sex: Female
  Weight: 49.9 kg

DRUGS (1)
  1. CIPRO [Suspect]
     Active Substance: CIPROFLOXACIN HYDROCHLORIDE
     Indication: INFECTION

REACTIONS (5)
  - Anxiety [None]
  - Thinking abnormal [None]
  - Mental disorder [None]
  - Nervousness [None]
  - Hallucination [None]

NARRATIVE: CASE EVENT DATE: 20121022
